FAERS Safety Report 19160453 (Version 13)
Quarter: 2023Q2

REPORT INFORMATION
  Report Type: Report from Study
  Country: IN (occurrence: IN)
  Receive Date: 20210420
  Receipt Date: 20230425
  Transmission Date: 20230722
  Serious: Yes (Hospitalization)
  Sender: FDA-Public Use
  Company Number: IN-AMGEN-INDCT2021053185

PATIENT
  Age: 61 Year
  Sex: Female
  Weight: 55.95 kg

DRUGS (13)
  1. CARFILZOMIB [Suspect]
     Active Substance: CARFILZOMIB
     Indication: Plasma cell myeloma
     Dosage: 40 MILLIGRAM
     Route: 042
     Dates: start: 20201211
  2. CARFILZOMIB [Suspect]
     Active Substance: CARFILZOMIB
     Dosage: UNK
     Route: 042
     Dates: start: 20210602
  3. SODIUM CHLORIDE [Concomitant]
     Active Substance: SODIUM CHLORIDE
     Dosage: 300 MILLILITER
     Dates: start: 20201211
  4. ACYCLOVIR [Concomitant]
     Active Substance: ACYCLOVIR
     Dosage: 400 MILLIGRAM
     Dates: start: 20201211, end: 20220505
  5. RABEPRAZOLE [Concomitant]
     Active Substance: RABEPRAZOLE
     Dosage: 20 MILLIGRAM
     Dates: start: 20201211, end: 20220505
  6. DEXAMETHASONE [Concomitant]
     Active Substance: DEXAMETHASONE
     Indication: Plasma cell myeloma
     Dosage: 0-20 MILLIGRAM
     Dates: start: 20201211
  7. CILNIDIPINE [Concomitant]
     Active Substance: CILNIDIPINE
     Indication: Pneumonia acinetobacter
     Dosage: 10 MILLIGRAM, QD
     Route: 048
     Dates: start: 20191113, end: 20220505
  8. ATORVASTATIN CALCIUM [Concomitant]
     Active Substance: ATORVASTATIN CALCIUM
     Indication: Pneumonia acinetobacter
     Dosage: 20 MILLIGRAM, QD
     Route: 048
     Dates: start: 20190910, end: 20220505
  9. ASPIRIN [Concomitant]
     Active Substance: ASPIRIN
     Indication: Pneumonia acinetobacter
     Dosage: 75 MILLIGRAM, QD
     Route: 048
     Dates: start: 20190216, end: 20220505
  10. BISOPROLOL FUMARATE [Concomitant]
     Active Substance: BISOPROLOL FUMARATE
     Indication: Pneumonia acinetobacter
     Dosage: 2.5 MILLIGRAM, QD
     Route: 048
     Dates: start: 20190724, end: 20220505
  11. ZINCOVIT [ASCORBIC ACID;RETINOL;TOCOPHEROL;ZINC] [Concomitant]
     Indication: Pneumonia acinetobacter
     Dosage: 1 UNK, QD
     Route: 048
     Dates: start: 20190216, end: 20220505
  12. CALCIUM\CHOLECALCIFEROL [Concomitant]
     Active Substance: CALCIUM\CHOLECALCIFEROL
     Indication: Pneumonia acinetobacter
     Dosage: 500 MILLIGRAM, QD
     Route: 048
     Dates: start: 20190305, end: 20220505
  13. CREMAFFIN [Concomitant]
     Indication: Pneumonia acinetobacter
     Dosage: 15 MILLILITER, BID FOR 5 DAYS
     Route: 048
     Dates: start: 20190216, end: 20220505

REACTIONS (1)
  - Pneumonia acinetobacter [Recovered/Resolved]

NARRATIVE: CASE EVENT DATE: 20210331
